FAERS Safety Report 22072670 (Version 1)
Quarter: 2023Q1

REPORT INFORMATION
  Report Type: Report from Study
  Country: JP (occurrence: JP)
  Receive Date: 20230308
  Receipt Date: 20230308
  Transmission Date: 20230417
  Serious: Yes (Death, Hospitalization)
  Sender: FDA-Public Use
  Company Number: JP-GLAXOSMITHKLINE-JP2021JPN241662

PATIENT

DRUGS (7)
  1. DAPRODUSTAT [Suspect]
     Active Substance: DAPRODUSTAT
     Indication: Nephrogenic anaemia
     Dosage: 4 MG, QD
     Dates: start: 20210106, end: 20210414
  2. DAPRODUSTAT [Suspect]
     Active Substance: DAPRODUSTAT
     Dosage: 6 MG, QD
     Dates: start: 20210415, end: 20210526
  3. DAPRODUSTAT [Suspect]
     Active Substance: DAPRODUSTAT
     Dosage: 8 MG, QD
     Dates: start: 20210527, end: 20210906
  4. DARBEPOETIN ALFA [Concomitant]
     Active Substance: DARBEPOETIN ALFA
     Indication: Nephrogenic anaemia
     Dosage: 30 ?G  ONCE EVERY 4 WEEKS
     Route: 042
     Dates: end: 20201202
  5. AMLODIPINE BESYLATE\IRBESARTAN [Concomitant]
     Active Substance: AMLODIPINE BESYLATE\IRBESARTAN
     Indication: Hypertension
     Dosage: 1 DF, QD
     Route: 048
  6. INDAPAMIDE [Concomitant]
     Active Substance: INDAPAMIDE
     Indication: Hypertension
     Dosage: 1 MG, QD
     Route: 048
  7. PITAVASTATIN CALCIUM [Concomitant]
     Active Substance: PITAVASTATIN CALCIUM
     Indication: Hyperlipidaemia
     Dosage: UNK
     Route: 048

REACTIONS (4)
  - Dehydration [Unknown]
  - Heat exhaustion [Unknown]
  - Marasmus [Fatal]
  - Heat illness [Fatal]

NARRATIVE: CASE EVENT DATE: 20210818
